FAERS Safety Report 14419182 (Version 2)
Quarter: 2018Q1

REPORT INFORMATION
  Report Type: Spontaneous
  Country: ES (occurrence: ES)
  Receive Date: 20180122
  Receipt Date: 20180205
  Transmission Date: 20180509
  Serious: Yes (Hospitalization, Other)
  Sender: FDA-Public Use
  Company Number: GB-SA-2018SA012660

PATIENT
  Age: 64 Year
  Sex: Male

DRUGS (11)
  1. IRINOTECAN [Suspect]
     Active Substance: IRINOTECAN
     Indication: RECTOSIGMOID CANCER STAGE IV
     Route: 065
  2. FOLINIC ACID [Suspect]
     Active Substance: LEUCOVORIN
     Indication: METASTASES TO LIVER
     Route: 065
  3. BEVACIZUMAB. [Suspect]
     Active Substance: BEVACIZUMAB
     Indication: PRODUCT USED FOR UNKNOWN INDICATION
     Route: 065
  4. AFLIBERCEPT [Suspect]
     Active Substance: AFLIBERCEPT
     Indication: RECTOSIGMOID CANCER STAGE IV
     Route: 065
  5. FLUOROURACIL. [Suspect]
     Active Substance: FLUOROURACIL
     Indication: RECTOSIGMOID CANCER STAGE IV
     Route: 065
  6. FOLINIC ACID [Suspect]
     Active Substance: LEUCOVORIN
     Indication: RECTOSIGMOID CANCER STAGE IV
     Route: 065
  7. CAPECITABINE. [Suspect]
     Active Substance: CAPECITABINE
     Indication: PRODUCT USED FOR UNKNOWN INDICATION
     Route: 065
  8. IRINOTECAN [Suspect]
     Active Substance: IRINOTECAN
     Indication: METASTASES TO LIVER
     Route: 065
  9. AFLIBERCEPT [Suspect]
     Active Substance: AFLIBERCEPT
     Indication: METASTASES TO LIVER
     Route: 065
  10. FLUOROURACIL. [Suspect]
     Active Substance: FLUOROURACIL
     Indication: METASTASES TO LIVER
     Route: 065
  11. IRINOTECAN [Suspect]
     Active Substance: IRINOTECAN
     Indication: OFF LABEL USE
     Route: 065

REACTIONS (23)
  - Clostridial infection [Recovered/Resolved]
  - Tenderness [Recovered/Resolved]
  - Blood creatinine increased [Recovered/Resolved]
  - Blood lactic acid increased [Recovered/Resolved]
  - Induration [Recovered/Resolved]
  - Blood creatine phosphokinase increased [Recovered/Resolved]
  - Necrotising fasciitis [Recovered/Resolved]
  - Klebsiella infection [Recovered/Resolved]
  - Renal failure [Recovered/Resolved]
  - Hypotension [Recovered/Resolved]
  - C-reactive protein increased [Recovered/Resolved]
  - Prothrombin level decreased [Recovered/Resolved]
  - Coagulopathy [Recovered/Resolved]
  - Inflammation [Recovered/Resolved]
  - Leukocytosis [Recovered/Resolved]
  - Erythema [Recovered/Resolved]
  - Tachycardia [Recovered/Resolved]
  - Candida infection [Recovered/Resolved]
  - Neutrophilia [Recovered/Resolved]
  - Pyrexia [Recovered/Resolved]
  - Off label use [Unknown]
  - Proteus infection [Recovered/Resolved]
  - Chills [Recovered/Resolved]
